FAERS Safety Report 14035363 (Version 1)
Quarter: 2017Q4

REPORT INFORMATION
  Report Type: Spontaneous
  Country: US (occurrence: US)
  Receive Date: 20171003
  Receipt Date: 20171003
  Transmission Date: 20180321
  Serious: Yes (Hospitalization)
  Sender: FDA-Public Use
  Company Number: US-EAGLE PHARMACEUTICALS, INC.-US-2017EAG000091

PATIENT

DRUGS (12)
  1. RITUXAN [Concomitant]
     Active Substance: RITUXIMAB
     Dosage: UNK, CYCLE 3
  2. RITUXAN [Concomitant]
     Active Substance: RITUXIMAB
     Dosage: UNK, CYCLE 8
  3. RITUXAN [Concomitant]
     Active Substance: RITUXIMAB
     Indication: NON-HODGKIN^S LYMPHOMA UNSPECIFIED HISTOLOGY INDOLENT
     Dosage: UNK, CYCLE 1
  4. RITUXAN [Concomitant]
     Active Substance: RITUXIMAB
     Dosage: UNK, CYCLE 7
  5. BENDEKA [Suspect]
     Active Substance: BENDAMUSTINE HYDROCHLORIDE
     Dosage: UNK, CYCLE 4
  6. RITUXAN [Concomitant]
     Active Substance: RITUXIMAB
     Dosage: UNK, CYCLE 4
  7. RITUXAN [Concomitant]
     Active Substance: RITUXIMAB
     Dosage: UNK, CYCLE 5
  8. ALLOPURINOL. [Concomitant]
     Active Substance: ALLOPURINOL
     Indication: PREMEDICATION
     Dosage: UNK
  9. RITUXAN [Concomitant]
     Active Substance: RITUXIMAB
     Dosage: UNK, CYCLE 2
  10. BENDEKA [Suspect]
     Active Substance: BENDAMUSTINE HYDROCHLORIDE
     Indication: NON-HODGKIN^S LYMPHOMA UNSPECIFIED HISTOLOGY INDOLENT
     Dosage: UNK, CYCLE 1
  11. RITUXAN [Concomitant]
     Active Substance: RITUXIMAB
     Dosage: UNK, CYCLE 6
  12. BENDEKA [Suspect]
     Active Substance: BENDAMUSTINE HYDROCHLORIDE
     Dosage: UNK, CYCLE 8

REACTIONS (1)
  - Rash papular [Unknown]
